FAERS Safety Report 24786273 (Version 3)
Quarter: 2025Q1

REPORT INFORMATION
  Report Type: Spontaneous
  Country: US (occurrence: US)
  Receive Date: 20241229
  Receipt Date: 20250207
  Transmission Date: 20250409
  Serious: No
  Sender: ROCHE
  Company Number: US-ROCHE-10000165180

PATIENT
  Age: 19 Year
  Sex: Female
  Weight: 79.38 kg

DRUGS (5)
  1. XOLAIR PFS [Suspect]
     Active Substance: OMALIZUMAB
     Indication: Food allergy
     Dosage: STRENGTH: 300MG/2ML
     Route: 058
     Dates: start: 202408
  2. XOLAIR PFS [Suspect]
     Active Substance: OMALIZUMAB
     Indication: Urticaria
     Route: 058
     Dates: start: 202409
  3. ROBINUL [Concomitant]
     Active Substance: GLYCOPYRROLATE
     Route: 048
     Dates: start: 202405
  4. ROBINUL [Concomitant]
     Active Substance: GLYCOPYRROLATE
     Route: 048
     Dates: start: 2023
  5. YAZ [DROSPIRENONE;ETHINYLESTRADIOL BETADEX CLATHRATE] [Concomitant]
     Route: 048
     Dates: start: 202308

REACTIONS (8)
  - Pain [Unknown]
  - Device issue [Unknown]
  - Product dose omission issue [Unknown]
  - Wrong technique in device usage process [Unknown]
  - Product quality issue [Unknown]
  - Injection site erythema [Unknown]
  - Syringe issue [Unknown]
  - Injection site irritation [Unknown]

NARRATIVE: CASE EVENT DATE: 20241219
